FAERS Safety Report 23732277 (Version 1)
Quarter: 2024Q2

REPORT INFORMATION
  Report Type: Spontaneous
  Country: US (occurrence: US)
  Receive Date: 20240411
  Receipt Date: 20240411
  Transmission Date: 20240715
  Serious: Yes (Other)
  Sender: FDA-Public Use
  Company Number: US-PFIZER INC-202400081891

PATIENT
  Age: 75 Year
  Sex: Female

DRUGS (26)
  1. IBRANCE [Suspect]
     Active Substance: PALBOCICLIB
     Dosage: 75MG TABLET TAKE 1 TABLET BY MOUTH ONCE DAILY, TAKE FOR 21 DAYS THEN 7 DAYS OFF
     Route: 048
  2. BONIVA [Concomitant]
     Active Substance: IBANDRONATE SODIUM
  3. FOSAMAX [Concomitant]
     Active Substance: ALENDRONATE SODIUM
  4. ZOCOR [Concomitant]
     Active Substance: SIMVASTATIN
  5. PNEUMOVAX 23 [Concomitant]
     Active Substance: PNEUMOCOCCAL VACCINE, POLYVALENT 23
     Dosage: 1 DF
  6. DETROL [Concomitant]
     Active Substance: TOLTERODINE TARTRATE
  7. FLUTICASONE PROPIONATE [Concomitant]
     Active Substance: FLUTICASONE PROPIONATE
  8. ZITHROMAX [Concomitant]
     Active Substance: AZITHROMYCIN DIHYDRATE
  9. RECLAST [Concomitant]
     Active Substance: ZOLEDRONIC ACID
  10. ESOMEPRAZOLE MAGNESIUM [Concomitant]
     Active Substance: ESOMEPRAZOLE MAGNESIUM
  11. ANASTROZOLE [Concomitant]
     Active Substance: ANASTROZOLE
  12. WELLBUTRIN [Concomitant]
     Active Substance: BUPROPION HYDROCHLORIDE
  13. ASPIRIN [Concomitant]
     Active Substance: ASPIRIN
     Dosage: LOW DOSE ASPIRIN
  14. DAILY-VITE [Concomitant]
  15. OMEPRAZOLE [Concomitant]
     Active Substance: OMEPRAZOLE
  16. CALCIUM [Concomitant]
     Active Substance: CALCIUM
  17. ZYRTEC [Concomitant]
     Active Substance: CETIRIZINE HYDROCHLORIDE
  18. TETANUS TOXOIDS [Concomitant]
     Active Substance: TETANUS TOXOIDS
  19. SULFAMETHOXAZOLE [Concomitant]
     Active Substance: SULFAMETHOXAZOLE
  20. TRIMETHOPRIM [Concomitant]
     Active Substance: TRIMETHOPRIM
  21. VESICARE [Concomitant]
     Active Substance: SOLIFENACIN SUCCINATE
  22. FLUCONAZOLE [Concomitant]
     Active Substance: FLUCONAZOLE
  23. ZOLEDRONIC ACID [Concomitant]
     Active Substance: ZOLEDRONIC ACID
  24. PROAIR HFA [Concomitant]
     Active Substance: ALBUTEROL SULFATE
  25. VITAMIN B12 [Concomitant]
     Active Substance: CYANOCOBALAMIN
  26. GENERAL NUTRIENTS;MINERALS NOS [Concomitant]

REACTIONS (3)
  - Knee operation [Not Recovered/Not Resolved]
  - Tooth infection [Not Recovered/Not Resolved]
  - Dyspnoea [Not Recovered/Not Resolved]
